FAERS Safety Report 5467344-6 (Version None)
Quarter: 2007Q3

REPORT INFORMATION
  Report Type: 
  Country: None (occurrence: None)
  Receive Date: 20070925
  Receipt Date: 20070917
  Transmission Date: 20080115
  Serious: Yes (Other)
  Sender: FDA-Public Use
  Company Number: US-PFIZER INC-2007050016

PATIENT
  Sex: Female
  Weight: 40.9 kg

DRUGS (3)
  1. DETROL [Suspect]
     Indication: HYPERTONIC BLADDER
  2. PROPRANOLOL [Concomitant]
  3. ASPIRIN [Concomitant]

REACTIONS (2)
  - CONFUSIONAL STATE [None]
  - DEMENTIA [None]
